FAERS Safety Report 19856286 (Version 1)
Quarter: 2021Q3

REPORT INFORMATION
  Report Type: Spontaneous
  Country: CA (occurrence: CA)
  Receive Date: 20210920
  Receipt Date: 20210920
  Transmission Date: 20211014
  Serious: Yes (Disabling)
  Sender: FDA-Public Use
  Company Number: CA-TEVA-2021-CA-1954182

PATIENT
  Age: 45 Year
  Sex: Male

DRUGS (3)
  1. PREGABALIN. [Concomitant]
     Active Substance: PREGABALIN
     Route: 065
  2. MONTELUKAST [Suspect]
     Active Substance: MONTELUKAST SODIUM
     Indication: HYPERSENSITIVITY
     Route: 048
  3. SYNTHROID [Concomitant]
     Active Substance: LEVOTHYROXINE SODIUM
     Route: 065

REACTIONS (9)
  - Panic attack [Unknown]
  - Anxiety [Unknown]
  - Tremor [Unknown]
  - Weight decreased [Unknown]
  - Abnormal dreams [Unknown]
  - Decreased appetite [Unknown]
  - Dizziness [Unknown]
  - Sleep disorder [Unknown]
  - Depressed mood [Unknown]
